FAERS Safety Report 7412378-5 (Version None)
Quarter: 2011Q2

REPORT INFORMATION
  Report Type: 
  Country: None (occurrence: None)
  Receive Date: 20110413
  Receipt Date: 20110411
  Transmission Date: 20111010
  Serious: Yes (Other)
  Sender: FDA-Public Use
  Company Number: NO-PFIZER INC-2011052664

PATIENT
  Age: 32 Year
  Sex: Female

DRUGS (12)
  1. RELPAX [Concomitant]
     Dosage: UNK
  2. LYRICA [Suspect]
     Dosage: 300 MG, 2X/DAY
     Dates: end: 20101101
  3. RANITIDINE [Concomitant]
     Dosage: UNK
  4. AFIPRAN [Concomitant]
     Dosage: UNK
  5. CIPRALEX [Concomitant]
     Dosage: UNK
  6. HIPREX [Concomitant]
     Dosage: UNK
  7. VIVAL [Concomitant]
     Dosage: UNK
  8. AFI-D2-FORTE [Concomitant]
     Dosage: UNK
  9. LYRICA [Suspect]
     Indication: ANXIETY
     Dosage: 75 MG, 1X/DAY
     Dates: start: 20090501
  10. CALCIGRAN FORTE [Concomitant]
     Dosage: UNK
  11. VALLERGAN [Concomitant]
     Dosage: UNK
  12. SEROQUEL [Concomitant]
     Dosage: UNK

REACTIONS (2)
  - DRUG ABUSE [None]
  - OVERDOSE [None]
